FAERS Safety Report 4324891-8 (Version None)
Quarter: 2004Q1

REPORT INFORMATION
  Report Type: 
  Country: None (occurrence: None)
  Receive Date: 20040325
  Receipt Date: 20040325
  Transmission Date: 20041129
  Serious: Yes (Death, Life-Threatening, Hospitalization)
  Sender: FDA-Public Use
  Company Number: None

PATIENT
  Age: 22 Year
  Sex: Male

DRUGS (7)
  1. 2C-T-21 ALSO KNOWN AS 2,5 -DIMETHOXY-4(2-FLUOROETHYLTHIO)PHENETHYLAMIN [Suspect]
  2. NEURONTIN [Concomitant]
  3. PREVACID [Concomitant]
  4. PAXIL [Concomitant]
  5. ZANAFLEX [Concomitant]
  6. MELATONIN [Concomitant]
  7. ANTIBIOTIC [Concomitant]

REACTIONS (6)
  - COMA [None]
  - CONVULSION [None]
  - HYPERTHERMIA MALIGNANT [None]
  - MULTI-ORGAN FAILURE [None]
  - TREMOR [None]
  - VISION BLURRED [None]
